FAERS Safety Report 7904812-9 (Version None)
Quarter: 2011Q4

REPORT INFORMATION
  Report Type: 
  Country: None (occurrence: None)
  Receive Date: 20111109
  Receipt Date: 20111026
  Transmission Date: 20120403
  Serious: Yes (Hospitalization, Other)
  Sender: FDA-Public Use
  Company Number: PHHY2011JP69484

PATIENT
  Sex: Male
  Weight: 58 kg

DRUGS (16)
  1. NEORAL [Suspect]
     Dosage: 50 MG,
     Route: 048
     Dates: start: 20090721, end: 20110726
  2. DIOVAN [Concomitant]
     Dosage: 80 MG, UNK
     Route: 048
  3. PREDNISOLONE [Concomitant]
     Dosage: 7.5 MG, UNK
     Route: 048
  4. PREDNISOLONE [Concomitant]
     Dosage: 5 MG, UNK
     Route: 048
  5. PREDNISOLONE [Concomitant]
     Dosage: 10 MG, UNK
     Route: 048
  6. RABEPRAZOLE SODIUM [Concomitant]
     Dosage: 10 MG, UNK
     Route: 048
  7. NATEGLINIDE [Concomitant]
     Dosage: 180 MG, UNK
     Route: 048
  8. NEORAL [Suspect]
     Indication: NEPHROTIC SYNDROME
     Dosage: 100 MG,
     Route: 048
     Dates: start: 20090611, end: 20090713
  9. NEORAL [Suspect]
     Dosage: 75 MG,
     Route: 048
     Dates: start: 20090714, end: 20090720
  10. PREDNISOLONE [Concomitant]
     Dosage: 10 MG, UNK
     Route: 048
  11. NEORAL [Suspect]
     Dosage: 25 MG, UNK
     Route: 048
     Dates: start: 20110802, end: 20110815
  12. DEPAKENE [Concomitant]
     Dosage: 100 MG, UNK
     Route: 048
  13. DEPAKENE [Concomitant]
     Dosage: 200 MG, UNK
     Route: 048
  14. DEPAKENE [Concomitant]
     Dosage: 200 MG, UNK
     Route: 048
  15. ZETIA [Concomitant]
     Dosage: 10 MG, UNK
     Route: 048
  16. ACTONEL [Concomitant]
     Dosage: 17.5 MG, UNK
     Route: 048

REACTIONS (6)
  - PSYCHOTIC DISORDER [None]
  - HAEMORRHOIDS [None]
  - GASTRIC CANCER [None]
  - GASTROINTESTINAL HAEMORRHAGE [None]
  - ANAEMIA [None]
  - HAEMOGLOBIN DECREASED [None]
